FAERS Safety Report 14870503 (Version 1)
Quarter: 2018Q2

REPORT INFORMATION
  Report Type: Spontaneous
  Country: NL (occurrence: NL)
  Receive Date: 20180509
  Receipt Date: 20180509
  Transmission Date: 20180711
  Serious: Yes (Other)
  Sender: FDA-Public Use
  Company Number: NL-TEVA-2018-NL-889671

PATIENT
  Age: 60 Year
  Sex: Male

DRUGS (2)
  1. HYDROCHLOORTHIAZIDE 12,5 MG [Concomitant]
     Route: 065
  2. SIMVASTATINE TABLET FO 40MG FILMOMHULDE TABLET, 40 MG (MILLIGRAM) [Suspect]
     Active Substance: SIMVASTATIN
     Indication: HYPERCHOLESTEROLAEMIA
     Dosage: 40 MILLIGRAM DAILY;
     Route: 065
     Dates: start: 20180301, end: 20180302

REACTIONS (4)
  - Headache [Recovered/Resolved]
  - Myalgia [Recovered/Resolved]
  - Dizziness [Recovered/Resolved]
  - Syncope [Recovered/Resolved]

NARRATIVE: CASE EVENT DATE: 20180301
